FAERS Safety Report 5198953-X (Version None)
Quarter: 2006Q4

REPORT INFORMATION
  Report Type: 
  Country: None (occurrence: None)
  Receive Date: 20060921
  Receipt Date: 20051011
  Transmission Date: 20070319
  Serious: Yes (Other)
  Sender: FDA-Public Use
  Company Number: PHEH2005US11358

PATIENT
  Age: 11 Year
  Sex: Female

DRUGS (2)
  1. ZELNORM [Suspect]
     Indication: IRRITABILITY
     Dosage: 2 MG, BID, ORAL
     Route: 048
     Dates: start: 20050101
  2. OMEPRAZOLE [Concomitant]

REACTIONS (1)
  - DEPRESSION [None]
